FAERS Safety Report 24533339 (Version 1)
Quarter: 2024Q4

REPORT INFORMATION
  Report Type: Spontaneous
  Country: IT (occurrence: IT)
  Receive Date: 20241022
  Receipt Date: 20241022
  Transmission Date: 20250114
  Serious: Yes (Other)
  Sender: MERCK
  Company Number: IT-009507513-2410ITA007183

PATIENT
  Age: 70 Year
  Sex: Male

DRUGS (2)
  1. RECARBRIO [Suspect]
     Active Substance: CILASTATIN\IMIPENEM ANHYDROUS\RELEBACTAM ANHYDROUS
     Indication: Klebsiella bacteraemia
     Dosage: 1.25 GRAM/6H
     Route: 042
     Dates: start: 20241009, end: 20241015
  2. CEFIDEROCOL [Suspect]
     Active Substance: CEFIDEROCOL
     Indication: Klebsiella bacteraemia
     Dosage: UNK
     Dates: start: 20241010

REACTIONS (3)
  - Glomerular filtration rate decreased [Unknown]
  - Tremor [Unknown]
  - Off label use [Unknown]

NARRATIVE: CASE EVENT DATE: 20241001
